FAERS Safety Report 11053192 (Version 1)
Quarter: 2015Q2

REPORT INFORMATION
  Report Type: Report from Study
  Country: GB (occurrence: GB)
  Receive Date: 20150421
  Receipt Date: 20150421
  Transmission Date: 20150821
  Serious: Yes (Other)
  Sender: FDA-Public Use
  Company Number: GB-ABBVIE-15K-167-1334300-00

PATIENT
  Age: 63 Year
  Sex: Female
  Weight: 73 kg

DRUGS (10)
  1. HUMIRA [Suspect]
     Active Substance: ADALIMUMAB
     Route: 065
     Dates: start: 20150126, end: 20150323
  2. FOLIC ACID. [Concomitant]
     Active Substance: FOLIC ACID
     Indication: PROPHYLAXIS
     Route: 048
  3. THYROXINE [Concomitant]
     Active Substance: LEVOTHYROXINE
     Indication: HYPOTHYROIDISM
     Route: 048
  4. HUMIRA [Suspect]
     Active Substance: ADALIMUMAB
     Indication: RHEUMATOID ARTHRITIS
     Route: 065
     Dates: start: 20141110, end: 20141208
  5. NEXIUM [Concomitant]
     Active Substance: ESOMEPRAZOLE MAGNESIUM
     Indication: GASTRITIS
     Route: 048
  6. BIOTIN [Concomitant]
     Active Substance: BIOTIN
     Indication: SJOGREN^S SYNDROME
     Route: 048
  7. VISCOTEARS [Concomitant]
     Active Substance: CARBOMER
     Indication: SJOGREN^S SYNDROME
     Dates: start: 20150305, end: 20150309
  8. COCODAMOL [Concomitant]
     Active Substance: ACETAMINOPHEN\CODEINE PHOSPHATE
     Indication: ANALGESIC THERAPY
     Dosage: 30/50, EVERYDAY
     Route: 048
  9. ILOPROST [Concomitant]
     Active Substance: ILOPROST
     Indication: RAYNAUD^S PHENOMENON
     Dosage: 500CG 5/7
     Route: 042
     Dates: start: 20150413
  10. METHOTREXATE [Concomitant]
     Active Substance: METHOTREXATE
     Indication: RHEUMATOID ARTHRITIS
     Route: 048

REACTIONS (2)
  - Cough [Not Recovered/Not Resolved]
  - Nasopharyngitis [Recovered/Resolved]

NARRATIVE: CASE EVENT DATE: 20141215
